FAERS Safety Report 11125333 (Version 2)
Quarter: 2015Q2

REPORT INFORMATION
  Report Type: Spontaneous
  Country: KR (occurrence: KR)
  Receive Date: 20150520
  Receipt Date: 20150630
  Transmission Date: 20150821
  Serious: Yes (Hospitalization, Other)
  Sender: FDA-Public Use
  Company Number: KR-OTSUKA-2015_001641

PATIENT
  Age: 53 Year
  Sex: Male
  Weight: 73 kg

DRUGS (17)
  1. DACOGEN [Suspect]
     Active Substance: DECITABINE
     Dosage: 20 MG/M2, 1 IN
     Route: 042
     Dates: start: 20140203, end: 20140207
  2. METOCLOPRAMIDE HYDROCHLORIDE. [Concomitant]
     Active Substance: METOCLOPRAMIDE HYDROCHLORIDE
     Indication: PAIN PROPHYLAXIS
     Dosage: 10 MG, 1 IN
     Route: 042
     Dates: start: 20131014, end: 20131018
  3. DACOGEN [Suspect]
     Active Substance: DECITABINE
     Dosage: 20 MG/M2, 1 IN
     Route: 042
     Dates: start: 20131216, end: 20131220
  4. ETHAMBUTOL HYDROCHLORIDE. [Concomitant]
     Active Substance: ETHAMBUTOL HYDROCHLORIDE
     Indication: PERICARDITIS TUBERCULOUS
     Dosage: 400 MG, 3 IN 1 DAY
     Route: 048
     Dates: start: 20131203, end: 20150106
  5. PREPENEM [Concomitant]
     Indication: ANTIBIOTIC THERAPY
     Dosage: 100 MG, 1 IN
     Route: 042
     Dates: start: 20131103, end: 20131118
  6. TAZIME [Concomitant]
     Indication: ANTIBIOTIC THERAPY
     Dosage: 2 G, 1 IN
     Route: 042
     Dates: start: 20131028, end: 20131128
  7. DACOGEN [Suspect]
     Active Substance: DECITABINE
     Indication: MYELODYSPLASTIC SYNDROME
     Dosage: 20 MG/M2, UNK
     Route: 042
     Dates: start: 20131014, end: 20131018
  8. TEICOPLANIN [Concomitant]
     Active Substance: TEICOPLANIN
     Indication: ANTIBIOTIC THERAPY
     Dosage: 400 MG, 1 IN
     Route: 042
     Dates: start: 20131028, end: 20131128
  9. FUNGIZONE [Concomitant]
     Active Substance: AMPHOTERICIN B
     Indication: ANTIBIOTIC THERAPY
     Dosage: 70 MG, 1 IN
     Route: 042
     Dates: start: 20131103, end: 20131118
  10. CARDUUS MARIANUS [Concomitant]
     Indication: ABDOMINAL DISCOMFORT
     Dosage: 140 MG, 3 IN
     Route: 042
     Dates: start: 20131028, end: 20131117
  11. RIFAMPICIN [Concomitant]
     Active Substance: RIFAMPIN
     Indication: PERICARDITIS TUBERCULOUS
     Dosage: 600 MG, QD
     Route: 048
     Dates: start: 20131203, end: 20150106
  12. OZEX [Concomitant]
     Active Substance: TOSUFLOXACIN TOSYLATE
     Indication: PROPHYLAXIS
     Dosage: 150 MG, 3 IN
     Route: 048
     Dates: start: 20131014, end: 20131028
  13. URSODEOXYCHOLIC ACID [Concomitant]
     Active Substance: URSODIOL
     Indication: PROPHYLAXIS
     Dosage: 40 MG, 1 IN
     Route: 048
     Dates: start: 20131028, end: 20131117
  14. MOXADIL [Concomitant]
     Indication: PROPHYLAXIS
     Dosage: 40 MG, 3 IN
     Route: 048
     Dates: start: 20131014, end: 20131031
  15. CRAVIT [Concomitant]
     Active Substance: LEVOFLOXACIN
     Indication: ANTIBIOTIC THERAPY
     Dosage: 500 MG, 1 IN
     Route: 048
     Dates: start: 20131216, end: 20140110
  16. GRASIN [Concomitant]
     Indication: ANTIBIOTIC THERAPY
     Dosage: 300 MG, 1 IN
     Route: 042
     Dates: start: 20131014, end: 20140110
  17. NEUTROGIN [Concomitant]
     Active Substance: LENOGRASTIM
     Indication: ANTIBIOTIC THERAPY
     Dosage: 250 UG, 1 IN
     Route: 042
     Dates: start: 20140115, end: 20140326

REACTIONS (4)
  - Hepatitis acute [Recovered/Resolved]
  - Pericardial effusion [Recovered/Resolved]
  - Pericarditis tuberculous [Recovered/Resolved]
  - Febrile neutropenia [Recovered/Resolved]

NARRATIVE: CASE EVENT DATE: 20131028
